FAERS Safety Report 19102024 (Version 2)
Quarter: 2021Q3

REPORT INFORMATION
  Report Type: Spontaneous
  Country: RO (occurrence: RO)
  Receive Date: 20210407
  Receipt Date: 20210922
  Transmission Date: 20211014
  Serious: Yes (Other)
  Sender: FDA-Public Use
  Company Number: RO-ROCHE-2799899

PATIENT
  Age: 72 Year
  Sex: Female

DRUGS (5)
  1. OBINUTUZUMAB. [Suspect]
     Active Substance: OBINUTUZUMAB
     Route: 065
     Dates: start: 20190606
  2. CHLORAMBUCIL [Suspect]
     Active Substance: CHLORAMBUCIL
     Indication: CHRONIC LYMPHOCYTIC LEUKAEMIA
     Route: 065
     Dates: start: 20190508
  3. CHLORAMBUCIL [Suspect]
     Active Substance: CHLORAMBUCIL
     Route: 065
     Dates: start: 20190606
  4. OBINUTUZUMAB. [Suspect]
     Active Substance: OBINUTUZUMAB
     Indication: CHRONIC LYMPHOCYTIC LEUKAEMIA
     Route: 065
     Dates: start: 20190508
  5. FILGRASTIM [Concomitant]
     Active Substance: FILGRASTIM

REACTIONS (7)
  - Hepatosplenomegaly [Unknown]
  - Asthenia [Unknown]
  - Fatigue [Unknown]
  - Neutropenia [Unknown]
  - Lymphadenopathy [Unknown]
  - Weight control [Unknown]
  - Night sweats [Unknown]
